FAERS Safety Report 4294889-7 (Version None)
Quarter: 2004Q1

REPORT INFORMATION
  Report Type: 
  Country: None (occurrence: None)
  Receive Date: 20040216
  Receipt Date: 20030211
  Transmission Date: 20041129
  Serious: No
  Sender: FDA-Public Use
  Company Number: US-GLAXOSMITHKLINE-A0396276A

PATIENT
  Sex: Male

DRUGS (4)
  1. LAMICTAL [Suspect]
     Dosage: 50MG PER DAY
     Route: 048
     Dates: start: 20030211
  2. CELEXA [Concomitant]
  3. ADDERALL 10 [Concomitant]
  4. TEGRETOL [Concomitant]

REACTIONS (2)
  - DEPRESSION [None]
  - MOOD SWINGS [None]
